FAERS Safety Report 4436144-8 (Version None)
Quarter: 2004Q3

REPORT INFORMATION
  Report Type: 
  Country: None (occurrence: None)
  Receive Date: 20040830
  Receipt Date: 20040820
  Transmission Date: 20050211
  Serious: Yes (Hospitalization)
  Sender: FDA-Public Use
  Company Number: US-JNJFOC-20040807932

PATIENT
  Sex: Female
  Weight: 64.2 kg

DRUGS (7)
  1. REMICADE [Suspect]
     Indication: CROHN'S DISEASE
     Route: 042
  2. PAXIL [Concomitant]
  3. PROTONIX [Concomitant]
  4. RAGLAN [Concomitant]
  5. NOTEN [Concomitant]
  6. COMPAZINE [Concomitant]
  7. PHENERGAN HCL [Concomitant]

REACTIONS (5)
  - FEELING ABNORMAL [None]
  - LOOSE STOOLS [None]
  - NAUSEA [None]
  - RETCHING [None]
  - VOMITING [None]
